FAERS Safety Report 4693165-8 (Version None)
Quarter: 2005Q2

REPORT INFORMATION
  Report Type: 
  Country: None (occurrence: None)
  Receive Date: 20050617
  Receipt Date: 20050603
  Transmission Date: 20051028
  Serious: Yes (Other)
  Sender: FDA-Public Use
  Company Number: GB-JNJFOC-20050603417

PATIENT
  Age: 15 Year
  Sex: Female
  Weight: 44 kg

DRUGS (7)
  1. TRAMADOL HCL [Suspect]
     Indication: PAIN
     Route: 042
  2. DICLOFENAC [Concomitant]
     Indication: PAIN
     Route: 054
  3. MORPHINE [Concomitant]
     Route: 042
  4. CO-AMOXICLAV [Concomitant]
     Route: 042
  5. CO-AMOXICLAV [Concomitant]
     Route: 042
  6. PARACETAMOL [Concomitant]
     Route: 042
  7. RANITIDINE [Concomitant]
     Indication: DRUG USE FOR UNKNOWN INDICATION
     Route: 042

REACTIONS (4)
  - GLASGOW COMA SCALE ABNORMAL [None]
  - MUSCLE RIGIDITY [None]
  - STARING [None]
  - UNRESPONSIVE TO PAIN STIMULI [None]
